FAERS Safety Report 5871504-X (Version None)
Quarter: 2008Q3

REPORT INFORMATION
  Report Type: 
  Country: None (occurrence: None)
  Receive Date: 20080905
  Receipt Date: 20080304
  Transmission Date: 20090109
  Serious: No
  Sender: FDA-Public Use
  Company Number: A0713300A

PATIENT
  Sex: Female

DRUGS (9)
  1. REQUIP [Suspect]
     Indication: RESTLESS LEGS SYNDROME
     Dosage: .25MG PER DAY
     Route: 048
     Dates: start: 20071122
  2. UNKNOWN MEDICATION [Concomitant]
  3. HEART MEDICATION [Concomitant]
  4. PLAVIX [Concomitant]
  5. ZETIA [Concomitant]
  6. ASPIRIN [Concomitant]
  7. DIGITOXIN INJ [Concomitant]
  8. ATIVAN [Concomitant]
  9. WATER PILL [Concomitant]

REACTIONS (1)
  - BLOOD PRESSURE DECREASED [None]
